FAERS Safety Report 12832451 (Version 1)
Quarter: 2016Q4

REPORT INFORMATION
  Report Type: Spontaneous
  Country: US (occurrence: US)
  Receive Date: 20161010
  Receipt Date: 20161010
  Transmission Date: 20170207
  Serious: No
  Sender: FDA-Public Use
  Company Number: US-JAZZ-2016-US-013262

PATIENT
  Sex: Male

DRUGS (7)
  1. PROSCAR [Concomitant]
     Active Substance: FINASTERIDE
  2. XYREM [Suspect]
     Active Substance: SODIUM OXYBATE
     Dosage: 4 G, BID
     Route: 048
     Dates: start: 200610, end: 2008
  3. XYREM [Suspect]
     Active Substance: SODIUM OXYBATE
     Dosage: 4 G, BID
     Route: 048
     Dates: start: 200807
  4. AMBIEN [Concomitant]
     Active Substance: ZOLPIDEM TARTRATE
  5. ZOVIRAX [Concomitant]
     Active Substance: ACYCLOVIR
  6. XYREM [Suspect]
     Active Substance: SODIUM OXYBATE
     Indication: SLEEP DISORDER
     Dosage: 2 G, BID
     Route: 048
     Dates: start: 200411, end: 2005
  7. XYREM [Suspect]
     Active Substance: SODIUM OXYBATE
     Dosage: 1 G, BID
     Route: 048
     Dates: start: 200610, end: 200610

REACTIONS (1)
  - Nasopharyngitis [Not Recovered/Not Resolved]
